FAERS Safety Report 10884991 (Version 3)
Quarter: 2015Q2

REPORT INFORMATION
  Report Type: Spontaneous
  Country: US (occurrence: US)
  Receive Date: 20150304
  Receipt Date: 20150526
  Transmission Date: 20150821
  Serious: Yes (Death, Hospitalization)
  Sender: FDA-Public Use
  Company Number: US-PFIZER INC-2015073462

PATIENT
  Age: 75 Year
  Sex: Female
  Weight: 64 kg

DRUGS (9)
  1. LYRICA [Suspect]
     Active Substance: PREGABALIN
     Indication: MYOPATHY
     Dosage: 50 MG, 2X/DAY
     Route: 048
     Dates: start: 20131025
  2. CYMBALTA [Concomitant]
     Active Substance: DULOXETINE HYDROCHLORIDE
     Indication: MYOPATHY
     Dosage: UNK
     Dates: start: 20130806, end: 20140929
  3. LYRICA [Suspect]
     Active Substance: PREGABALIN
     Indication: NEUROPATHY PERIPHERAL
     Dosage: 150 MG, 2X/DAY
     Route: 048
  4. LYRICA [Suspect]
     Active Substance: PREGABALIN
     Dosage: 100 MG, 2X/DAY
     Route: 048
     Dates: start: 20140804
  5. LYRICA [Suspect]
     Active Substance: PREGABALIN
     Indication: NEURITIS
     Dosage: 100 MG, 3X/DAY
     Route: 048
     Dates: start: 2013
  6. HYDROMORPHONE [Concomitant]
     Active Substance: HYDROMORPHONE
     Dosage: UNK
  7. LYRICA [Suspect]
     Active Substance: PREGABALIN
     Dosage: 100 MG, 3X/DAY
     Route: 048
     Dates: start: 20141014
  8. PREDNISONE. [Concomitant]
     Active Substance: PREDNISONE
     Dosage: UNK
     Dates: start: 201308, end: 2014
  9. PREDNISONE. [Concomitant]
     Active Substance: PREDNISONE
     Indication: WEST NILE VIRAL INFECTION
     Dosage: 40 MG, DAILY
     Dates: start: 20130817, end: 20140324

REACTIONS (3)
  - Metastases to central nervous system [Fatal]
  - Lung cancer metastatic [Fatal]
  - Metastases to bone [Fatal]

NARRATIVE: CASE EVENT DATE: 201409
